FAERS Safety Report 7611401-2 (Version None)
Quarter: 2011Q3

REPORT INFORMATION
  Report Type: 
  Country: None (occurrence: None)
  Receive Date: 20110715
  Receipt Date: 20110712
  Transmission Date: 20111222
  Serious: Yes (Hospitalization, Congenital Anomaly, Other)
  Sender: FDA-Public Use
  Company Number: US-PFIZER INC-2008049848

PATIENT
  Sex: Male
  Weight: 3.5 kg

DRUGS (6)
  1. ZOLOFT [Suspect]
     Indication: ANXIETY
     Dosage: 100 MG, 1X/DAY
     Route: 064
     Dates: start: 20000101
  2. ZOLOFT [Suspect]
     Dosage: 100 MG, AT BED TIME
     Route: 064
     Dates: start: 20041201, end: 20070509
  3. ZOLOFT [Suspect]
     Dosage: 100 MG, UNK
     Route: 064
     Dates: start: 20040101
  4. ZOLOFT [Suspect]
     Dosage: 150 MG, UNK
     Route: 064
     Dates: start: 20031111
  5. SERTRALINE HYDROCHLORIDE [Suspect]
     Indication: ANXIETY
     Dosage: 100 MG, UNK
     Route: 064
     Dates: start: 20060914
  6. ZOLOFT [Suspect]
     Dosage: 75 MG, AT BED TIME
     Route: 064
     Dates: start: 20070606

REACTIONS (11)
  - MATERNAL EXPOSURE DURING PREGNANCY [None]
  - ASTHMA [None]
  - ATRIAL SEPTAL DEFECT [None]
  - RESPIRATORY SYNCYTIAL VIRUS BRONCHIOLITIS [None]
  - PULMONARY VALVE STENOSIS [None]
  - BRONCHITIS [None]
  - PNEUMONIA [None]
  - OTITIS MEDIA [None]
  - PATENT DUCTUS ARTERIOSUS [None]
  - CARDIAC MURMUR [None]
  - NASOPHARYNGITIS [None]
